FAERS Safety Report 5099180-7 (Version None)
Quarter: 2006Q3

REPORT INFORMATION
  Report Type: 
  Country: None (occurrence: None)
  Receive Date: 20060728
  Receipt Date: 20060329
  Transmission Date: 20061208
  Serious: No
  Sender: FDA-Public Use
  Company Number: COT_0553_2006

PATIENT
  Age: 80 Year
  Sex: Female
  Weight: 74.3899 kg

DRUGS (13)
  1. VENTAVIS [Suspect]
     Indication: PULMONARY HYPERTENSION
     Dosage: 2.5 MCG ONCE IH
     Route: 055
     Dates: start: 20050822, end: 20050822
  2. VENTAVIS [Suspect]
     Indication: PULMONARY HYPERTENSION
     Dosage: 5 MCG 6XD IH
     Route: 055
     Dates: start: 20050822
  3. POTASSIUM CHLORIDE [Concomitant]
  4. VERAPAMIL HYDROCHLORIDE [Concomitant]
  5. FUROSEMIDE [Concomitant]
  6. GEMFIBROZIL [Concomitant]
  7. PROPAFENONE HYDROCHLORIDE [Concomitant]
  8. ASPIRIN [Concomitant]
  9. BENICAR [Concomitant]
  10. ENALAPRIL MALEATE [Concomitant]
  11. SPIRONOLACTONE [Concomitant]
  12. LOVASTATIN [Concomitant]
  13. HYDRALAZINE HYDROCHLORIDE [Concomitant]

REACTIONS (1)
  - FEELING COLD [None]
